FAERS Safety Report 12489074 (Version 2)
Quarter: 2016Q2

REPORT INFORMATION
  Report Type: Spontaneous
  Country: US (occurrence: US)
  Receive Date: 20160622
  Receipt Date: 20160624
  Transmission Date: 20160815
  Serious: Yes (Hospitalization, Other)
  Sender: FDA-Public Use
  Company Number: US-PFIZER INC-2016301202

PATIENT
  Age: 62 Year
  Sex: Male
  Weight: 126 kg

DRUGS (1)
  1. RAPAMUNE [Suspect]
     Active Substance: SIROLIMUS
     Indication: RENAL TRANSPLANT
     Dosage: 1 MG, DAILY
     Route: 048
     Dates: start: 2010

REACTIONS (4)
  - Dyspnoea [Recovering/Resolving]
  - Condition aggravated [Unknown]
  - Cardiac failure congestive [Unknown]
  - Bronchitis [Recovering/Resolving]

NARRATIVE: CASE EVENT DATE: 20160608
